FAERS Safety Report 14328480 (Version 31)
Quarter: 2022Q4

REPORT INFORMATION
  Report Type: Spontaneous
  Country: BR (occurrence: BR)
  Receive Date: 20171227
  Receipt Date: 20221213
  Transmission Date: 20230113
  Serious: Yes (Other)
  Sender: FDA-Public Use
  Company Number: BR-GLAXOSMITHKLINE-BR2017GSK162592

PATIENT

DRUGS (23)
  1. BENLYSTA [Suspect]
     Active Substance: BELIMUMAB
     Indication: Systemic lupus erythematosus
     Dosage: 820 MG, UNK
     Dates: start: 20171010
  2. BENLYSTA [Suspect]
     Active Substance: BELIMUMAB
     Dosage: 800 MG, UNK
     Dates: start: 20171107
  3. BENLYSTA [Suspect]
     Active Substance: BELIMUMAB
     Dosage: UNK
     Dates: start: 20210616
  4. BENLYSTA [Suspect]
     Active Substance: BELIMUMAB
     Dosage: 120 MG, Z ONCE MONTH 7 VIALS
     Dates: start: 20171010
  5. BENLYSTA [Suspect]
     Active Substance: BELIMUMAB
     Dosage: 840 MG, EVERY 28 DAYS
  6. FLUTICASONE FUROATE [Suspect]
     Active Substance: FLUTICASONE FUROATE
     Indication: Nasopharyngitis
     Dosage: UNK, BID 6 DROPS TO EACH NOSTRIL
  7. FLUTICASONE FUROATE [Suspect]
     Active Substance: FLUTICASONE FUROATE
     Indication: Headache
  8. FLUTICASONE FUROATE [Suspect]
     Active Substance: FLUTICASONE FUROATE
     Indication: Oropharyngeal pain
  9. FLUTICASONE FUROATE [Suspect]
     Active Substance: FLUTICASONE FUROATE
     Indication: Ear pain
  10. PREDNISONE [Suspect]
     Active Substance: PREDNISONE
     Indication: Systemic lupus erythematosus
     Dosage: 5 MG, QD
  11. METAMIZOLE SODIUM [Suspect]
     Active Substance: METAMIZOLE SODIUM
     Indication: Nasopharyngitis
     Dosage: UNK UNK, Z EVERY 6 HOURS
  12. METAMIZOLE SODIUM [Suspect]
     Active Substance: METAMIZOLE SODIUM
     Indication: Headache
  13. METAMIZOLE SODIUM [Suspect]
     Active Substance: METAMIZOLE SODIUM
     Indication: Oropharyngeal pain
  14. METAMIZOLE SODIUM [Suspect]
     Active Substance: METAMIZOLE SODIUM
     Indication: Ear pain
  15. DIPYRONE\PROMETHAZINE HYDROCHLORIDE [Suspect]
     Active Substance: DIPYRONE\PROMETHAZINE HYDROCHLORIDE
     Indication: Nasopharyngitis
     Dosage: UNK UNK, Z EVERY 6 HOURS
  16. DIPYRONE\PROMETHAZINE HYDROCHLORIDE [Suspect]
     Active Substance: DIPYRONE\PROMETHAZINE HYDROCHLORIDE
     Indication: Headache
  17. DIPYRONE\PROMETHAZINE HYDROCHLORIDE [Suspect]
     Active Substance: DIPYRONE\PROMETHAZINE HYDROCHLORIDE
     Indication: Oropharyngeal pain
  18. DIPYRONE\PROMETHAZINE HYDROCHLORIDE [Suspect]
     Active Substance: DIPYRONE\PROMETHAZINE HYDROCHLORIDE
     Indication: Ear pain
  19. ATENOLOL [Concomitant]
     Active Substance: ATENOLOL
     Indication: Blood pressure abnormal
     Dosage: 50 MG, UNK
  20. ENALAPRIL [Concomitant]
     Active Substance: ENALAPRIL
     Indication: Blood pressure abnormal
     Dosage: 20 MG, UNK
  21. HYDROCHLOROTHIAZIDE\LOSARTAN [Concomitant]
     Active Substance: HYDROCHLOROTHIAZIDE\LOSARTAN
     Indication: Blood pressure measurement
     Dosage: 25 MG, UNK
  22. AZATHIOPRINE [Concomitant]
     Active Substance: AZATHIOPRINE
     Indication: Systemic lupus erythematosus
     Dosage: 150 MG, UNK
  23. AZATHIOPRINE [Concomitant]
     Active Substance: AZATHIOPRINE
     Dosage: 50 MG

REACTIONS (62)
  - Proteinuria [Recovered/Resolved]
  - Kidney infection [Recovered/Resolved]
  - Systemic lupus erythematosus [Unknown]
  - Nephritis [Unknown]
  - Renal failure [Unknown]
  - Cataract [Recovered/Resolved]
  - Facial bones fracture [Unknown]
  - Pain [Unknown]
  - Fatigue [Unknown]
  - Hair texture abnormal [Recovered/Resolved]
  - Nail disorder [Not Recovered/Not Resolved]
  - Arthralgia [Not Recovered/Not Resolved]
  - Renal disorder [Recovered/Resolved]
  - Gait disturbance [Not Recovered/Not Resolved]
  - Alopecia [Recovered/Resolved]
  - Disease recurrence [Unknown]
  - Influenza [Recovered/Resolved]
  - Lung disorder [Unknown]
  - Extremity necrosis [Unknown]
  - Weight fluctuation [Recovered/Resolved]
  - Labyrinthitis [Unknown]
  - Fall [Unknown]
  - Vertigo [Unknown]
  - Hypertension [Unknown]
  - Tremor [Unknown]
  - Oropharyngeal discomfort [Recovered/Resolved]
  - Sneezing [Recovered/Resolved]
  - Secretion discharge [Recovered/Resolved]
  - Paraesthesia [Unknown]
  - Visual impairment [Not Recovered/Not Resolved]
  - COVID-19 [Recovered/Resolved]
  - Headache [Recovered/Resolved]
  - Nasopharyngitis [Recovered/Resolved]
  - Cough [Not Recovered/Not Resolved]
  - Rhinorrhoea [Not Recovered/Not Resolved]
  - Ear discomfort [Not Recovered/Not Resolved]
  - Oropharyngeal pain [Not Recovered/Not Resolved]
  - Condition aggravated [Unknown]
  - Dental prosthesis user [Unknown]
  - Vision blurred [Not Recovered/Not Resolved]
  - Pharyngeal inflammation [Recovered/Resolved]
  - Pharyngitis [Recovered/Resolved]
  - Social problem [Unknown]
  - Therapeutic response unexpected [Recovered/Resolved]
  - Ear pain [Not Recovered/Not Resolved]
  - Dizziness [Not Recovered/Not Resolved]
  - Arthralgia [Unknown]
  - Adverse event [Unknown]
  - Labyrinthitis [Recovered/Resolved]
  - Pain in extremity [Recovered/Resolved]
  - Head discomfort [Unknown]
  - Product availability issue [Unknown]
  - Underdose [Unknown]
  - Asthenopia [Not Recovered/Not Resolved]
  - Balance disorder [Not Recovered/Not Resolved]
  - Malaise [Recovered/Resolved]
  - Feeling abnormal [Unknown]
  - Myopia [Not Recovered/Not Resolved]
  - Surgery [Unknown]
  - Visual impairment [Unknown]
  - Product dose omission issue [Unknown]
  - Inappropriate schedule of product administration [Unknown]

NARRATIVE: CASE EVENT DATE: 20210301
